FAERS Safety Report 4396746-4 (Version None)
Quarter: 2004Q3

REPORT INFORMATION
  Report Type: 
  Country: None (occurrence: None)
  Receive Date: 20040708
  Receipt Date: 20040630
  Transmission Date: 20050211
  Serious: Yes (Hospitalization)
  Sender: FDA-Public Use
  Company Number: 2004214704JP

PATIENT
  Age: 53 Year
  Sex: Female
  Weight: 45.5 kg

DRUGS (6)
  1. AZULFIDINE EN-TABS [Suspect]
     Indication: RHEUMATOID ARTHRITIS
     Dosage: 500 MG, BID, ORAL
     Route: 048
     Dates: start: 20030716, end: 20030813
  2. AURANOFIN [Concomitant]
  3. PREDNISOLONE [Concomitant]
  4. ZANTAC [Concomitant]
  5. PREDONINE [Concomitant]
  6. SELBEX (TEPRENONE) [Concomitant]

REACTIONS (2)
  - INTERSTITIAL LUNG DISEASE [None]
  - PNEUMONIA MYCOPLASMAL [None]
